FAERS Safety Report 9254147 (Version 1)
Quarter: 2013Q2

REPORT INFORMATION
  Report Type: Spontaneous
  Country: IT (occurrence: None)
  Receive Date: 20130419
  Receipt Date: 20130419
  Transmission Date: 20140414
  Serious: No
  Sender: FDA-Public Use
  Company Number: 2013AP004542

PATIENT
  Age: 52 Year
  Sex: Female

DRUGS (1)
  1. AZITHROMYCIN (AZITHROMYCIN) [Suspect]
     Indication: COUGH
     Route: 048
     Dates: start: 20130312, end: 20130312

REACTIONS (4)
  - Dyspnoea [None]
  - Eyelid oedema [None]
  - Paraesthesia [None]
  - Tongue oedema [None]
